FAERS Safety Report 6016558-5 (Version None)
Quarter: 2008Q4

REPORT INFORMATION
  Report Type: 
  Country: None (occurrence: None)
  Receive Date: 20081222
  Receipt Date: 20081217
  Transmission Date: 20090506
  Serious: Yes (Other)
  Sender: FDA-Public Use
  Company Number: CN-JNJFOC-20081205014

PATIENT
  Age: 28 Year
  Sex: Male

DRUGS (1)
  1. TOPAMAX [Suspect]
     Indication: EPILEPSY
     Dosage: 75 MG IN THE AM, 100 MG IN THE PM.
     Route: 048

REACTIONS (5)
  - ALTERED STATE OF CONSCIOUSNESS [None]
  - DIZZINESS [None]
  - EXPRESSIVE LANGUAGE DISORDER [None]
  - HYPERHIDROSIS [None]
  - PALPITATIONS [None]
